FAERS Safety Report 7046264-X (Version None)
Quarter: 2010Q4

REPORT INFORMATION
  Report Type: 
  Country: None (occurrence: None)
  Receive Date: 20101014
  Receipt Date: 20101007
  Transmission Date: 20110411
  Serious: Yes (Congenital Anomaly)
  Sender: FDA-Public Use
  Company Number: A0886427A

PATIENT
  Sex: Male
  Weight: 2.3 kg

DRUGS (5)
  1. COMBIVIR [Suspect]
     Indication: ANTIVIRAL TREATMENT
     Dosage: 2TAB PER DAY
  2. PREZISTA [Suspect]
     Indication: ANTIVIRAL TREATMENT
     Dosage: 1200MG PER DAY
  3. NORVIR [Suspect]
     Indication: ANTIVIRAL TREATMENT
     Dosage: 200MG PER DAY
  4. TRUVADA [Suspect]
     Indication: ANTIVIRAL TREATMENT
     Dosage: 1MG PER DAY
  5. METHADONE [Concomitant]
     Indication: PRODUCT USED FOR UNKNOWN INDICATION

REACTIONS (3)
  - DRUG EXPOSURE DURING PREGNANCY [None]
  - MENINGITIS NEONATAL [None]
  - POLYDACTYLY [None]
